FAERS Safety Report 15577120 (Version 1)
Quarter: 2018Q4

REPORT INFORMATION
  Report Type: Spontaneous
  Country: US (occurrence: US)
  Receive Date: 20181101
  Receipt Date: 20181101
  Transmission Date: 20190205
  Serious: No
  Sender: FDA-Public Use
  Company Number: US-JNJFOC-20181013087

PATIENT
  Age: 66 Year
  Sex: Male

DRUGS (1)
  1. TYLENOL EXTRA STRENGTH [Suspect]
     Active Substance: ACETAMINOPHEN
     Indication: PAIN PROPHYLAXIS
     Dosage: 2 GEL CAPS ONCE
     Route: 048
     Dates: start: 20181008

REACTIONS (3)
  - Product dispensing error [Unknown]
  - Product use in unapproved indication [Unknown]
  - Expired product administered [Unknown]
